FAERS Safety Report 9449096 (Version 2)
Quarter: 2013Q3

REPORT INFORMATION
  Report Type: Spontaneous
  Country: GB (occurrence: GB)
  Receive Date: 20130808
  Receipt Date: 20130916
  Transmission Date: 20140515
  Serious: Yes (Life-Threatening)
  Sender: FDA-Public Use
  Company Number: GB-WATSON-2013-13928

PATIENT
  Age: 57 Year
  Sex: Male
  Weight: 87 kg

DRUGS (1)
  1. PRAMIPEXOLE [Suspect]

REACTIONS (6)
  - Drug-induced liver injury [Not Recovered/Not Resolved]
  - Chronic hepatitis [Unknown]
  - Jaundice [Not Recovered/Not Resolved]
  - Lethargy [Not Recovered/Not Resolved]
  - Chromaturia [Unknown]
  - Liver function test abnormal [Not Recovered/Not Resolved]
